FAERS Safety Report 25493259 (Version 1)
Quarter: 2025Q2

REPORT INFORMATION
  Report Type: Spontaneous
  Country: US (occurrence: US)
  Receive Date: 20250630
  Receipt Date: 20250630
  Transmission Date: 20250716
  Serious: Yes (Other)
  Sender: COOPERSURGICAL
  Company Number: US-COOPERSURGICAL, INC.-2025CPS005160

PATIENT
  Age: 42 Year
  Sex: Female
  Weight: 58.957 kg

DRUGS (1)
  1. PARAGARD T 380A [Suspect]
     Active Substance: COPPER
     Indication: Contraception
     Route: 015
     Dates: start: 2002

REACTIONS (14)
  - Uterine cervical laceration [Unknown]
  - Reproductive complication associated with device [Unknown]
  - Device breakage [Recovered/Resolved]
  - Foreign body in reproductive tract [Recovered/Resolved]
  - Complication of device removal [Recovered/Resolved]
  - Cervix scarring [Not Recovered/Not Resolved]
  - Emotional disorder [Unknown]
  - Pain [Unknown]
  - Abdominal pain [Unknown]
  - Abnormal uterine bleeding [Unknown]
  - Procedural pain [Recovered/Resolved]
  - Discomfort [Unknown]
  - Device use issue [Unknown]
  - Off label use [Unknown]

NARRATIVE: CASE EVENT DATE: 20170616
